FAERS Safety Report 24247642 (Version 1)
Quarter: 2024Q3

REPORT INFORMATION
  Report Type: Report from Study
  Country: IT (occurrence: IT)
  Receive Date: 20240826
  Receipt Date: 20240826
  Transmission Date: 20241016
  Serious: Yes (Other)
  Sender: AUROBINDO
  Company Number: IT-RECORDATI-2024005950

PATIENT

DRUGS (1)
  1. IBUPROFEN [Suspect]
     Active Substance: IBUPROFEN
     Indication: Patent ductus arteriosus
     Dosage: 10 MILLIGRAM/KILOGRAM
     Route: 065
     Dates: start: 20180909

REACTIONS (1)
  - Intraventricular haemorrhage neonatal [Unknown]
